FAERS Safety Report 25256769 (Version 3)
Quarter: 2025Q3

REPORT INFORMATION
  Report Type: Spontaneous
  Country: US (occurrence: US)
  Receive Date: 20250430
  Receipt Date: 20250715
  Transmission Date: 20251020
  Serious: No
  Sender: INTRABIO
  Company Number: US-IBO-202500084

PATIENT
  Age: 33 Year
  Sex: Male
  Weight: 65 kg

DRUGS (6)
  1. AQNEURSA [Suspect]
     Active Substance: LEVACETYLLEUCINE
     Indication: Product used for unknown indication
     Route: 065
     Dates: start: 20250212, end: 20250616
  2. TRAZODONE [Concomitant]
     Active Substance: TRAZODONE HYDROCHLORIDE
     Route: 065
  3. GEMTESA [Concomitant]
     Active Substance: VIBEGRON
     Indication: Product used for unknown indication
     Route: 065
  4. MIGLUSTAT [Concomitant]
     Active Substance: MIGLUSTAT
     Indication: Product used for unknown indication
     Route: 065
  5. MIPLYFFA [Concomitant]
     Active Substance: ARIMOCLOMOL CITRATE
     Indication: Product used for unknown indication
     Route: 065
  6. TRIHEXYPHENIDYL [Concomitant]
     Active Substance: TRIHEXYPHENIDYL
     Indication: Product used for unknown indication
     Route: 065

REACTIONS (5)
  - Fall [Not Recovered/Not Resolved]
  - Dysphagia [Not Recovered/Not Resolved]
  - Dysarthria [Unknown]
  - Restlessness [Not Recovered/Not Resolved]
  - Dysphonia [Unknown]
